FAERS Safety Report 6610611-0 (Version None)
Quarter: 2010Q1

REPORT INFORMATION
  Report Type: 
  Country: None (occurrence: None)
  Receive Date: 20100302
  Receipt Date: 20100217
  Transmission Date: 20100710
  Serious: Yes (Other)
  Sender: FDA-Public Use
  Company Number: US-JNJFOC-20100204878

PATIENT
  Age: 65 Year
  Sex: Female
  Weight: 135.17 kg

DRUGS (12)
  1. EXTRA STRENGTH TYLENOL [Suspect]
     Route: 048
  2. EXTRA STRENGTH TYLENOL [Suspect]
     Indication: ARTHRITIS
     Route: 048
  3. LANTUS [Concomitant]
     Indication: DIABETES MELLITUS
  4. ASPIRIN [Concomitant]
     Indication: CARDIAC DISORDER
  5. ATENOLOL [Concomitant]
     Indication: BLOOD PRESSURE
  6. CLONIDINE [Concomitant]
     Indication: BLOOD PRESSURE
  7. GLICLAZIDE [Concomitant]
     Indication: DIABETES MELLITUS
  8. SYNTHROID [Concomitant]
  9. PRAVACHOL [Concomitant]
     Indication: BLOOD CHOLESTEROL INCREASED
  10. TERAZOSIN HCL [Concomitant]
     Indication: CARDIAC DISORDER
  11. POTASSIUM [Concomitant]
  12. AVALIDE [Concomitant]
     Indication: BLOOD PRESSURE
     Dosage: DOSE =300/25

REACTIONS (8)
  - ABDOMINAL PAIN UPPER [None]
  - DIARRHOEA [None]
  - DIZZINESS [None]
  - HOT FLUSH [None]
  - HYPERHIDROSIS [None]
  - PRODUCT QUALITY ISSUE [None]
  - RECTAL HAEMORRHAGE [None]
  - VOMITING [None]
